FAERS Safety Report 8406888-1 (Version None)
Quarter: 2012Q2

REPORT INFORMATION
  Report Type: 
  Country: None (occurrence: None)
  Receive Date: 20120604
  Receipt Date: 20120524
  Transmission Date: 20120825
  Serious: Yes (Other)
  Sender: FDA-Public Use
  Company Number: CA-SANOFI-AVENTIS-2012SA037317

PATIENT
  Age: 44 Year
  Sex: Male

DRUGS (7)
  1. DABIGATRAN [Concomitant]
     Route: 065
  2. ATORVASTATIN CALCIUM [Concomitant]
     Route: 065
  3. QUINAPRIL [Concomitant]
     Route: 065
  4. DILTIAZEM [Concomitant]
     Route: 065
  5. DRONEDARONE HCL [Suspect]
     Route: 048
  6. MULTI-VITAMINS [Concomitant]
     Route: 065
  7. IBUPROFEN [Concomitant]
     Route: 065

REACTIONS (2)
  - HEPATOTOXICITY [None]
  - TOXICITY TO VARIOUS AGENTS [None]
